FAERS Safety Report 8494221 (Version 4)
Quarter: 2013Q3

REPORT INFORMATION
  Report Type: Spontaneous
  Country: DE (occurrence: DE)
  Receive Date: 20120404
  Receipt Date: 20130722
  Transmission Date: 20140515
  Serious: Yes (Hospitalization)
  Sender: FDA-Public Use
  Company Number: DE-JNJFOC-20120311882

PATIENT
  Age: 16 Year
  Sex: Male
  Weight: 55.8 kg

DRUGS (2)
  1. CONCERTA [Suspect]
     Indication: ATTENTION DEFICIT/HYPERACTIVITY DISORDER
     Route: 048
     Dates: start: 20091202, end: 201112
  2. CONCERTA [Suspect]
     Indication: ATTENTION DEFICIT/HYPERACTIVITY DISORDER
     Route: 048
     Dates: start: 20111212, end: 20120308

REACTIONS (10)
  - Syncope [Recovering/Resolving]
  - Hypokinesia [Recovering/Resolving]
  - Vasculitis cerebral [Unknown]
  - Retrograde amnesia [Recovering/Resolving]
  - Stupor [Recovering/Resolving]
  - Meningism [Recovering/Resolving]
  - Convulsion [Recovering/Resolving]
  - Tachycardia [Unknown]
  - Dyskinesia [Unknown]
  - Feeling of relaxation [Unknown]
